FAERS Safety Report 12542133 (Version 3)
Quarter: 2019Q4

REPORT INFORMATION
  Report Type: Report from Study
  Country: US (occurrence: US)
  Receive Date: 20160708
  Receipt Date: 20191203
  Transmission Date: 20200122
  Serious: Yes (Other)
  Sender: FDA-Public Use
  Company Number: US-ALLERGAN-1662101US

PATIENT
  Sex: Female

DRUGS (1)
  1. CYCLOSPORINE 0.5MG/ML EML (9054X) [Suspect]
     Active Substance: CYCLOSPORINE
     Indication: DRY EYE
     Dosage: UNK
     Route: 047
     Dates: start: 201608

REACTIONS (10)
  - Bone pain [Unknown]
  - Walking aid user [Unknown]
  - Vomiting [Unknown]
  - Dyspnoea [Unknown]
  - Chemotherapy [Not Recovered/Not Resolved]
  - Splenomegaly [Unknown]
  - Terminal state [Not Recovered/Not Resolved]
  - Arthralgia [Unknown]
  - Gastrooesophageal reflux disease [Unknown]
  - Nausea [Unknown]
